FAERS Safety Report 5009442-7 (Version None)
Quarter: 2006Q2

REPORT INFORMATION
  Report Type: 
  Country: None (occurrence: None)
  Receive Date: 20060522
  Receipt Date: 20060504
  Transmission Date: 20061013
  Serious: Yes (Other)
  Sender: FDA-Public Use
  Company Number: 2006-142179-NL

PATIENT
  Age: 44 Year
  Sex: Female

DRUGS (7)
  1. NUVARING [Suspect]
     Indication: CONTRACEPTION
     Dosage: 21 DAYS IN/7 DAYS OUT-USED FOR ONLY 24-25 HOURS TOTAL
     Dates: start: 20060502, end: 20060503
  2. MINOCYCLINE HCL [Concomitant]
  3. PRILOSEC [Concomitant]
  4. PROVENTIL [Concomitant]
  5. TYLENOL (GELTAB) [Concomitant]
  6. SINGULAIR [Concomitant]
  7. ALLEGRA [Concomitant]

REACTIONS (20)
  - ABDOMINAL DISTENSION [None]
  - ALLERGY TO ANIMAL [None]
  - BLOOD PRESSURE INCREASED [None]
  - COLD SWEAT [None]
  - DISCOMFORT [None]
  - DIZZINESS [None]
  - DRUG INEFFECTIVE [None]
  - FEELING HOT [None]
  - GASTRIC DISORDER [None]
  - HEADACHE [None]
  - IMPAIRED WORK ABILITY [None]
  - INSOMNIA [None]
  - MUSCLE SPASMS [None]
  - MYCOTIC ALLERGY [None]
  - NAUSEA [None]
  - SEASONAL ALLERGY [None]
  - UROGENITAL DISORDER [None]
  - VAGINAL SWELLING [None]
  - VISION BLURRED [None]
  - VOMITING [None]
